FAERS Safety Report 5027715-9 (Version None)
Quarter: 2006Q2

REPORT INFORMATION
  Report Type: 
  Country: None (occurrence: None)
  Receive Date: 20060616
  Receipt Date: 20060314
  Transmission Date: 20061013
  Serious: Yes (Death, Other)
  Sender: FDA-Public Use
  Company Number: US-BRISTOL-MYERS SQUIBB COMPANY-13316161

PATIENT
  Age: 71 Year
  Sex: Male

DRUGS (7)
  1. ERBITUX [Suspect]
     Indication: NEOPLASM MALIGNANT
     Dosage: PRODUCT STRENGTH: 100 MG/50 ML. THERAPY DATES 18-NOV-05 TO 20-FEB-06.
     Route: 042
     Dates: start: 20060220, end: 20060220
  2. CARBOPLATIN [Concomitant]
     Dosage: THERAPY DATES 18-NOV-05 TO 20-FEB-06.
     Dates: start: 20060220, end: 20060220
  3. TAXOTERE [Concomitant]
     Dosage: THERAPY DATES 18-NOV-05 TO 20-FEB-2006.
     Dates: start: 20060220, end: 20060220
  4. MANNITOL [Concomitant]
     Dates: start: 20051118, end: 20060220
  5. ALOXI [Concomitant]
     Dates: start: 20051118, end: 20060220
  6. DECADRON [Concomitant]
     Dates: start: 20051118, end: 20060220
  7. BENADRYL [Concomitant]
     Dates: start: 20051118, end: 20060220

REACTIONS (1)
  - MYOCARDIAL INFARCTION [None]
